FAERS Safety Report 26121647 (Version 1)
Quarter: 2025Q4

REPORT INFORMATION
  Report Type: Report from Study
  Country: US (occurrence: US)
  Receive Date: 20251204
  Receipt Date: 20251204
  Transmission Date: 20260118
  Serious: Yes (Other)
  Sender: ABBVIE
  Company Number: US-ABBVIE-6573583

PATIENT
  Age: 70 Year
  Sex: Male
  Weight: 86.182 kg

DRUGS (2)
  1. RINVOQ [Suspect]
     Active Substance: UPADACITINIB
     Indication: Psoriatic arthropathy
     Dosage: FORM STRENGTH: 15 MG
     Route: 048
     Dates: start: 20250121, end: 202511
  2. METOPROLOL [Concomitant]
     Active Substance: METOPROLOL
     Indication: Hypertension

REACTIONS (9)
  - Lenticular opacities [Recovering/Resolving]
  - Psoriatic arthropathy [Not Recovered/Not Resolved]
  - Hepatic enzyme increased [Unknown]
  - Night blindness [Recovered/Resolved]
  - Pruritus [Not Recovered/Not Resolved]
  - Cataract [Recovering/Resolving]
  - Corneal scar [Recovering/Resolving]
  - Foreign body in eye [Recovering/Resolving]
  - Herpes ophthalmic [Unknown]

NARRATIVE: CASE EVENT DATE: 20250101
